FAERS Safety Report 9098292 (Version 2)
Quarter: 2013Q2

REPORT INFORMATION
  Report Type: Report from Study
  Country: CA (occurrence: CA)
  Receive Date: 20130213
  Receipt Date: 20130425
  Transmission Date: 20140414
  Serious: Yes (Other)
  Sender: FDA-Public Use
  Company Number: PHHY2013CA002857

PATIENT
  Age: 78 Year
  Sex: Female

DRUGS (11)
  1. ACLASTA [Suspect]
     Indication: OSTEOPOROTIC FRACTURE
     Dosage: 5 MG/YEAR
     Route: 042
     Dates: start: 20081117
  2. ACLASTA [Suspect]
     Dosage: 5 MG/YEAR
     Route: 042
     Dates: start: 20100128
  3. ACLASTA [Suspect]
     Dosage: 5 MG/YEAR
     Route: 042
     Dates: start: 20110127
  4. ACLASTA [Suspect]
     Dosage: 5 MG/YEAR
     Route: 042
     Dates: start: 20120209
  5. ACLASTA [Suspect]
     Dosage: 5 MG/YEAR
     Route: 042
     Dates: start: 20130212
  6. ACETAMINOPHEN [Concomitant]
     Dosage: UNK
  7. ARICEPT [Concomitant]
     Dosage: UNK
  8. CALCIA [Concomitant]
     Dosage: UNK
  9. DIOVAN [Concomitant]
     Dosage: UNK
  10. NORVASC [Concomitant]
  11. NEURONTIN [Concomitant]

REACTIONS (6)
  - Balance disorder [Unknown]
  - Dementia [Not Recovered/Not Resolved]
  - Memory impairment [Unknown]
  - Confusional state [Unknown]
  - Amnesia [Not Recovered/Not Resolved]
  - Malaise [Unknown]
